FAERS Safety Report 20529519 (Version 2)
Quarter: 2022Q1

REPORT INFORMATION
  Report Type: Spontaneous
  Country: JP (occurrence: JP)
  Receive Date: 20220228
  Receipt Date: 20220308
  Transmission Date: 20220423
  Serious: Yes (Hospitalization)
  Sender: FDA-Public Use
  Company Number: JP-DSJP-DSJ-2022-106515

PATIENT

DRUGS (1)
  1. DENOSUMAB [Suspect]
     Active Substance: DENOSUMAB
     Indication: Metastases to bone
     Dosage: UNK, 2022/02/18
     Route: 065

REACTIONS (4)
  - Haematochezia [Unknown]
  - Enterocolitis [Unknown]
  - COVID-19 [Unknown]
  - Diarrhoea [Unknown]
